FAERS Safety Report 18662666 (Version 1)
Quarter: 2020Q4

REPORT INFORMATION
  Report Type: Spontaneous
  Country: US (occurrence: US)
  Receive Date: 20201224
  Receipt Date: 20201224
  Transmission Date: 20210114
  Serious: No
  Sender: FDA-Public Use
  Company Number: US-GALDERMA-US2020032865

PATIENT
  Sex: Female

DRUGS (3)
  1. DIFFERIN GEL [Suspect]
     Active Substance: ADAPALENE
     Indication: ACNE
     Dosage: 0.1%
     Route: 061
  2. BENZOYL PEROXIDE. [Concomitant]
     Active Substance: BENZOYL PEROXIDE
     Indication: ACNE
     Route: 065
  3. SALICYLIC ACID. [Concomitant]
     Active Substance: SALICYLIC ACID
     Indication: ACNE
     Route: 065

REACTIONS (6)
  - Acne [Unknown]
  - Pruritus [Unknown]
  - Dermatitis contact [Unknown]
  - Dermatitis [Unknown]
  - Skin burning sensation [Unknown]
  - Drug ineffective [Unknown]
